FAERS Safety Report 8496885-2 (Version None)
Quarter: 2012Q3

REPORT INFORMATION
  Report Type: 
  Country: None (occurrence: None)
  Receive Date: 20120709
  Receipt Date: 20120627
  Transmission Date: 20120928
  Serious: Yes (Other)
  Sender: FDA-Public Use
  Company Number: US-ELI_LILLY_AND_COMPANY-US201203008240

PATIENT
  Sex: Female

DRUGS (3)
  1. FORTEO [Suspect]
     Dosage: 20 UG, QD
     Dates: start: 20111001
  2. FORTEO [Suspect]
     Dosage: 20 UG, QD
     Dates: start: 20111001
  3. FORTEO [Suspect]
     Indication: OSTEOPOROSIS
     Dosage: 20 UG, QD
     Dates: start: 20111001

REACTIONS (6)
  - EXERCISE TOLERANCE DECREASED [None]
  - HEAD INJURY [None]
  - FALL [None]
  - PAIN IN EXTREMITY [None]
  - ASTHENIA [None]
  - LOSS OF CONSCIOUSNESS [None]
